FAERS Safety Report 6096067-8 (Version None)
Quarter: 2009Q1

REPORT INFORMATION
  Report Type: 
  Country: None (occurrence: None)
  Receive Date: 20090227
  Receipt Date: 20080825
  Transmission Date: 20090719
  Serious: No
  Sender: FDA-Public Use
  Company Number: A0744108A

PATIENT
  Age: 52 Year
  Sex: Female

DRUGS (7)
  1. LAMICTAL [Suspect]
     Indication: TRIGEMINAL NEURALGIA
     Route: 048
     Dates: start: 20080709
  2. LAMICTAL [Suspect]
  3. CYMBALTA [Concomitant]
  4. ESTROGEN REPLACEMENT [Concomitant]
  5. VALTREX [Concomitant]
  6. LORAZEPAM [Concomitant]
  7. LORTAB [Concomitant]

REACTIONS (2)
  - THERAPEUTIC RESPONSE UNEXPECTED [None]
  - VISION BLURRED [None]
